FAERS Safety Report 6703364-9 (Version None)
Quarter: 2010Q2

REPORT INFORMATION
  Report Type: 
  Country: None (occurrence: None)
  Receive Date: 20100423
  Receipt Date: 20091222
  Transmission Date: 20101027
  Serious: No
  Sender: FDA-Public Use
  Company Number: SPV1-2009-02606

PATIENT
  Age: 40 Year
  Sex: Female

DRUGS (3)
  1. VYVANSE [Suspect]
     Indication: DRUG USE FOR UNKNOWN INDICATION
  2. VICODIN [Concomitant]
  3. FLEXERIL /00428402/ (CYCLOBENZAPRINE HYDROCHLORIDE) [Concomitant]

REACTIONS (3)
  - DRUG DIVERSION [None]
  - NO ADVERSE EVENT [None]
  - THEFT [None]
